FAERS Safety Report 9480268 (Version 1)
Quarter: 2013Q3

REPORT INFORMATION
  Report Type: Spontaneous
  Country: US (occurrence: US)
  Receive Date: 20130828
  Receipt Date: 20130828
  Transmission Date: 20140515
  Serious: No
  Sender: FDA-Public Use
  Company Number: US-009507513-1308USA009224

PATIENT
  Age: 28 Year
  Sex: 0
  Weight: 92.52 kg

DRUGS (1)
  1. NEXPLANON [Suspect]
     Dosage: UNK
     Dates: start: 20130816

REACTIONS (3)
  - Device difficult to use [Unknown]
  - Needle issue [Unknown]
  - No adverse event [Unknown]
